FAERS Safety Report 16481611 (Version 1)
Quarter: 2019Q2

REPORT INFORMATION
  Report Type: Report from Study
  Country: CA (occurrence: CA)
  Receive Date: 20190627
  Receipt Date: 20190627
  Transmission Date: 20190711
  Serious: Yes (Hospitalization, Other)
  Sender: FDA-Public Use
  Company Number: CA-BEH-2019103258

PATIENT
  Sex: Female

DRUGS (4)
  1. AERIUS (DESLORATADINE) [Concomitant]
     Active Substance: DESLORATADINE
  2. EPIPEN [Concomitant]
     Active Substance: EPINEPHRINE
  3. BERINERT [Suspect]
     Active Substance: HUMAN C1-ESTERASE INHIBITOR
     Indication: HEREDITARY ANGIOEDEMA WITH NORMAL C1 ESTERASE INHIBITOR
     Dosage: 1500 INTERNATIONAL UNIT, PRN
     Route: 042
     Dates: start: 20181203
  4. BERINERT [Suspect]
     Active Substance: HUMAN C1-ESTERASE INHIBITOR
     Indication: HEREDITARY ANGIOEDEMA WITH NORMAL C1 ESTERASE INHIBITOR
     Dosage: 1500 INTERNATIONAL UNIT, PRN
     Route: 042
     Dates: start: 20181203

REACTIONS (5)
  - Weight decreased [Unknown]
  - Drug hypersensitivity [Unknown]
  - Palliative care [Unknown]
  - Product use in unapproved indication [Unknown]
  - No adverse event [Unknown]

NARRATIVE: CASE EVENT DATE: 201906
